FAERS Safety Report 5106870-6 (Version None)
Quarter: 2006Q3

REPORT INFORMATION
  Report Type: 
  Country: None (occurrence: None)
  Receive Date: 20060913
  Receipt Date: 20060908
  Transmission Date: 20061208
  Serious: Yes (Hospitalization)
  Sender: FDA-Public Use
  Company Number: LTI2006A00209

PATIENT
  Age: 34 Year
  Sex: Female

DRUGS (1)
  1. LEUPORORELIN DEPOT [Suspect]
     Indication: ENDOMETRIOSIS
     Dosage: 1 DF (1 DF);
     Dates: start: 20060422, end: 20060718

REACTIONS (2)
  - FACIAL PALSY [None]
  - OPTIC NEURITIS [None]
